FAERS Safety Report 9509505 (Version 1)
Quarter: 2013Q1

REPORT INFORMATION
  Report Type: Spontaneous
  Country: US (occurrence: None)
  Receive Date: 20130305
  Receipt Date: 20130305
  Transmission Date: 20140127
  Serious: Yes (Other)
  Sender: FDA-Public Use
  Company Number: 163-21880-12110712

PATIENT
  Age: 64 Year
  Sex: Female
  Weight: 61.24 kg

DRUGS (9)
  1. REVLIMID [Suspect]
     Indication: PLASMA CELL MYELOMA
     Dosage: 25 MG, 21 IN 21 D, PO
     Route: 048
     Dates: start: 20090909
  2. DEXAMETHASONE [Suspect]
     Indication: PRODUCT USED FOR UNKNOWN INDICATION
  3. CLINDAMYCIN [Concomitant]
  4. JANUVIA [Concomitant]
  5. AMARYL [Concomitant]
  6. ZOMETA [Concomitant]
  7. BEPREVE [Concomitant]
  8. METFORMIN [Concomitant]
  9. SIMVASTATIN [Suspect]

REACTIONS (2)
  - Blood glucose increased [None]
  - Toothache [None]
